FAERS Safety Report 6885208-8 (Version None)
Quarter: 2010Q3

REPORT INFORMATION
  Report Type: 
  Country: None (occurrence: None)
  Receive Date: 20100727
  Receipt Date: 20100715
  Transmission Date: 20110219
  Serious: Yes (Hospitalization)
  Sender: FDA-Public Use
  Company Number: US-BAXTER-2010BH015825

PATIENT
  Age: 58 Year
  Sex: Female
  Weight: 104 kg

DRUGS (18)
  1. GAMMAGARD LIQUID [Suspect]
     Indication: CHRONIC INFLAMMATORY DEMYELINATING POLYRADICULONEUROPATHY
     Route: 042
     Dates: start: 20100527
  2. GAMMAGARD LIQUID [Suspect]
     Indication: OFF LABEL USE
     Route: 042
     Dates: start: 20100527
  3. LASIX [Concomitant]
     Indication: HYPERTENSION
     Route: 048
  4. FOLIC ACID [Concomitant]
     Indication: METHYLENETETRAHYDROFOLATE REDUCTASE DEFICIENCY
     Route: 048
  5. ZANTAC [Concomitant]
  6. DOXEPIN HCL [Concomitant]
  7. HYDROXYZINE HYDROCHLORIDE [Concomitant]
  8. DIPHENHYDRAMINE HYDROCHLORIDE [Concomitant]
  9. OXYBUTYNIN CHLORIDE [Concomitant]
  10. POTASSIUM [Concomitant]
  11. ALDACTONE [Concomitant]
  12. NORTRIPTYLINE [Concomitant]
  13. CELEXA [Concomitant]
  14. PANTOPRAZOLE [Concomitant]
  15. SPIRONOLACTONE [Concomitant]
     Indication: HYPERTENSION
     Route: 048
  16. ASPIRINE [Concomitant]
     Indication: CARDIOVASCULAR EVENT PROPHYLAXIS
  17. ZYRTEC [Concomitant]
     Indication: HYPERSENSITIVITY
     Route: 048
  18. ATORVASTATIN [Concomitant]
     Indication: HYPERCHOLESTEROLAEMIA
     Route: 048

REACTIONS (2)
  - HEADACHE [None]
  - PHONOPHOBIA [None]
